FAERS Safety Report 4891808-7 (Version None)
Quarter: 2006Q1

REPORT INFORMATION
  Report Type: 
  Country: None (occurrence: None)
  Receive Date: 20060123
  Receipt Date: 20060109
  Transmission Date: 20060701
  Serious: Yes (Hospitalization)
  Sender: FDA-Public Use
  Company Number: FR200601001190

PATIENT
  Age: 82 Year
  Sex: Female

DRUGS (8)
  1. UMULINE NPH (HUMAN INSULIN (RDNA ORIGIN) NPH UNKNOWN FORMULATION) UNKN [Suspect]
     Indication: DIABETES MELLITUS
     Dosage: 2 D/F, 2/D, SUBCUTANEOUS
     Route: 058
  2. ASPIRIN [Concomitant]
  3. EUPANTOL (PANTOPRAZOLE) [Concomitant]
  4. EXELON [Concomitant]
  5. LEXOMIL (BROMAZEPAM) [Concomitant]
  6. DILTIAZEM [Concomitant]
  7. MIANSERIN (MIANSERIN) [Concomitant]
  8. FOSAMAX [Concomitant]

REACTIONS (2)
  - HYPOGLYCAEMIA [None]
  - MALAISE [None]
